FAERS Safety Report 8171288 (Version 5)
Quarter: 2014Q1

REPORT INFORMATION
  Report Type: Spontaneous
  Country: US (occurrence: US)
  Receive Date: 20111006
  Receipt Date: 20140117
  Transmission Date: 20141002
  Serious: Yes (Hospitalization)
  Sender: FDA-Public Use
  Company Number: US-GLAXOSMITHKLINE-B0752830A

PATIENT
  Age: 64 Year
  Sex: Male
  Weight: 109.5 kg

DRUGS (7)
  1. AVANDIA [Suspect]
     Indication: DIABETES MELLITUS
     Dosage: 8MG FOUR TIMES PER DAY
     Route: 048
     Dates: start: 1999, end: 2005
  2. DILTIAZEM [Concomitant]
  3. PREVACID [Concomitant]
  4. NORTRIPTYLINE [Concomitant]
  5. GLYBURIDE [Concomitant]
  6. LOTENSIN [Concomitant]
  7. HUMULIN [Concomitant]

REACTIONS (3)
  - Cerebrovascular accident [Not Recovered/Not Resolved]
  - Myocardial infarction [Unknown]
  - Cardiac failure congestive [Unknown]
